FAERS Safety Report 16786245 (Version 1)
Quarter: 2019Q3

REPORT INFORMATION
  Report Type: Spontaneous
  Country: US (occurrence: US)
  Receive Date: 20190909
  Receipt Date: 20190909
  Transmission Date: 20191005
  Serious: Yes (Other)
  Sender: FDA-Public Use
  Company Number: US-PFIZER INC-2019383415

PATIENT
  Age: 58 Year
  Sex: Female

DRUGS (2)
  1. RAPAMUNE [Suspect]
     Active Substance: SIROLIMUS
     Indication: RENAL TRANSPLANT
     Dosage: 0.5 MG, 1X/DAY
     Route: 048
     Dates: end: 201908
  2. RAPAMUNE [Suspect]
     Active Substance: SIROLIMUS
     Dosage: 2 DF, DAILY (1 MG FOR A WEEK OR TWO)
     Dates: start: 201908, end: 201908

REACTIONS (2)
  - Circumstance or information capable of leading to medication error [Unknown]
  - Renal transplant failure [Unknown]

NARRATIVE: CASE EVENT DATE: 2016
